FAERS Safety Report 4401230-5 (Version None)
Quarter: 2004Q3

REPORT INFORMATION
  Report Type: 
  Country: None (occurrence: None)
  Receive Date: 20040907
  Receipt Date: 20040109
  Transmission Date: 20050211
  Serious: No
  Sender: FDA-Public Use
  Company Number: US-BRISTOL-MYERS SQUIBB COMPANY-12474995

PATIENT
  Age: 64 Year
  Sex: Female

DRUGS (11)
  1. COUMADIN [Suspect]
  2. CLARITIN-D [Concomitant]
  3. EVISTA [Concomitant]
  4. CELEBREX [Concomitant]
  5. ALTACE [Concomitant]
  6. PROZAC [Concomitant]
  7. CALCIUM + VITAMIN D [Concomitant]
     Dates: end: 20031231
  8. VITAMIN E [Concomitant]
  9. MULTIVITAMIN [Concomitant]
  10. CARDIZEM CD [Concomitant]
     Dates: end: 20031231
  11. TOPROL-XL [Concomitant]
     Route: 048

REACTIONS (1)
  - RASH [None]
